FAERS Safety Report 9255075 (Version 1)
Quarter: 2013Q2

REPORT INFORMATION
  Report Type: Spontaneous
  Country: DK (occurrence: FR)
  Receive Date: 20130425
  Receipt Date: 20130425
  Transmission Date: 20140414
  Serious: Yes (Life-Threatening, Hospitalization)
  Sender: FDA-Public Use
  Company Number: FR-FRI-1000044672

PATIENT
  Age: 88 Year
  Sex: Female

DRUGS (5)
  1. ESCITALOPRAM [Suspect]
     Dosage: 10 MG
     Route: 048
     Dates: start: 20121119, end: 20130129
  2. OFLOCET [Suspect]
     Indication: HOSPITALISATION
     Dosage: 400 MG
     Route: 048
     Dates: start: 20130124, end: 20130128
  3. LOXEN [Suspect]
     Dosage: 100 MG
     Route: 048
     Dates: end: 20130201
  4. HALDOL [Suspect]
     Dosage: 6 DF
     Route: 048
     Dates: start: 20121118, end: 20130128
  5. XANAX [Concomitant]

REACTIONS (1)
  - Bicytopenia [Recovered/Resolved]
